FAERS Safety Report 8954643 (Version 1)
Quarter: 2012Q4

REPORT INFORMATION
  Report Type: Spontaneous
  Country: US (occurrence: None)
  Receive Date: 20121205
  Receipt Date: 20121205
  Transmission Date: 20130627
  Serious: Yes (Life-Threatening)
  Sender: FDA-Public Use
  Company Number: None

PATIENT
  Age: 47 Year
  Sex: Male
  Weight: 129.28 kg

DRUGS (1)
  1. HALDOL [Suspect]
     Indication: PSYCHOSIS
     Dates: start: 201207

REACTIONS (9)
  - Dyspnoea [None]
  - Dizziness [None]
  - Palpitations [None]
  - Influenza [None]
  - Hyperhidrosis [None]
  - Muscle disorder [None]
  - Chest pain [None]
  - Productive cough [None]
  - Sputum discoloured [None]
